FAERS Safety Report 6693130-5 (Version None)
Quarter: 2010Q2

REPORT INFORMATION
  Report Type: 
  Country: None (occurrence: None)
  Receive Date: 20100422
  Receipt Date: 20080507
  Transmission Date: 20101027
  Serious: Yes (Death)
  Sender: FDA-Public Use
  Company Number: US-CELGENEUS-163-21880-10041056

PATIENT
  Sex: Female

DRUGS (3)
  1. REVLIMID [Suspect]
     Indication: MULTIPLE MYELOMA
     Route: 048
     Dates: start: 20080201, end: 20080101
  2. REVLIMID [Suspect]
     Route: 048
     Dates: start: 20070501, end: 20070701
  3. REVLIMID [Suspect]
     Route: 048
     Dates: start: 20070901, end: 20071201

REACTIONS (1)
  - DEATH [None]
